FAERS Safety Report 4297278-4 (Version None)
Quarter: 2004Q1

REPORT INFORMATION
  Report Type: 
  Country: None (occurrence: None)
  Receive Date: 20040213
  Receipt Date: 20040202
  Transmission Date: 20041129
  Serious: Yes (Death)
  Sender: FDA-Public Use
  Company Number: US-JNJFOC-20031204273

PATIENT
  Age: 45 Year
  Sex: Female
  Weight: 51.2565 kg

DRUGS (9)
  1. REMICADE [Suspect]
     Indication: RHEUMATOID ARTHRITIS
     Dosage: 800 MG, INTRAVENOUS
     Route: 042
     Dates: start: 20031009
  2. FOLIC ACID [Concomitant]
  3. EFFEXOR [Concomitant]
  4. METHOTREXATE [Concomitant]
  5. PREDNISONE [Concomitant]
  6. ALLEGRA [Concomitant]
  7. NEXIUM [Concomitant]
  8. VICODIN [Concomitant]
  9. NORCO (VICODIN) [Concomitant]

REACTIONS (12)
  - ABDOMINAL STRANGULATED HERNIA [None]
  - CARDIO-RESPIRATORY ARREST [None]
  - DYSPHAGIA [None]
  - DYSPNOEA [None]
  - INFUSION RELATED REACTION [None]
  - INTESTINAL ISCHAEMIA [None]
  - METABOLIC ACIDOSIS [None]
  - NAUSEA [None]
  - PROCEDURAL COMPLICATION [None]
  - PYREXIA [None]
  - URTICARIA [None]
  - VOMITING [None]
